FAERS Safety Report 4726852-3 (Version None)
Quarter: 2005Q3

REPORT INFORMATION
  Report Type: 
  Country: None (occurrence: None)
  Receive Date: 20050726
  Receipt Date: 20050717
  Transmission Date: 20060218
  Serious: Yes (Death)
  Sender: FDA-Public Use
  Company Number: HQWYE248318JUL05

PATIENT
  Sex: Male

DRUGS (3)
  1. RAPAMUNE [Suspect]
     Indication: PROPHYLAXIS AGAINST TRANSPLANT REJECTION
     Dosage: 2 MG 1X PER 1 DAY; ORAL
     Route: 048
     Dates: start: 20050512, end: 20050604
  2. MYCOPHENOLATE MOFETIL [Concomitant]
  3. CORTICOSTEROID NOS [Concomitant]

REACTIONS (1)
  - DEEP VEIN THROMBOSIS [None]
